FAERS Safety Report 14378297 (Version 4)
Quarter: 2018Q3

REPORT INFORMATION
  Report Type: Spontaneous
  Country: US (occurrence: US)
  Receive Date: 20180111
  Receipt Date: 20180718
  Transmission Date: 20181010
  Serious: No
  Sender: FDA-Public Use
  Company Number: US-BIOGEN-2018BI00507404

PATIENT
  Sex: Female

DRUGS (1)
  1. TYSABRI [Suspect]
     Active Substance: NATALIZUMAB
     Indication: MULTIPLE SCLEROSIS
     Dosage: INFUSED OVER 1 HOUR
     Route: 042
     Dates: start: 20170915

REACTIONS (5)
  - Agraphia [Not Recovered/Not Resolved]
  - Gait inability [Not Recovered/Not Resolved]
  - Dysarthria [Not Recovered/Not Resolved]
  - Multiple sclerosis [Unknown]
  - Aphasia [Not Recovered/Not Resolved]
